FAERS Safety Report 12610635 (Version 2)
Quarter: 2016Q3

REPORT INFORMATION
  Report Type: Report from Study
  Country: JP (occurrence: JP)
  Receive Date: 20160801
  Receipt Date: 20160809
  Transmission Date: 20161109
  Serious: Yes (Hospitalization)
  Sender: FDA-Public Use
  Company Number: JP-AMGEN-JPNCT2016098906

PATIENT
  Age: 65 Year
  Sex: Male
  Weight: 55 kg

DRUGS (12)
  1. DENOSUMAB [Suspect]
     Active Substance: DENOSUMAB
     Dosage: 60 MG, Q3MO
     Route: 058
     Dates: start: 20150212
  2. ASPARA-CA [Suspect]
     Active Substance: CALCIUM ASPARTATE
     Indication: VITAMIN SUPPLEMENTATION
     Dosage: 800 MG, QD
     Route: 048
     Dates: start: 20151111, end: 20160725
  3. BUCILLAMINE [Concomitant]
     Active Substance: BUCILLAMINE
     Indication: RHEUMATOID ARTHRITIS
     Dosage: 100 MG, QD
     Route: 048
     Dates: start: 20150109
  4. DENOSUMAB [Suspect]
     Active Substance: DENOSUMAB
     Indication: RHEUMATOID ARTHRITIS
     Dosage: 60 MG, Q3MO
     Route: 058
     Dates: start: 20140205
  5. EDIROL [Concomitant]
     Active Substance: ELDECALCITOL
     Indication: MINERAL SUPPLEMENTATION
  6. ANTEBATE [Concomitant]
     Active Substance: BETAMETHASONE DIPROPIONATE
     Indication: DRY SKIN
     Dosage: PROPER QUANTITY, BID
     Route: 062
     Dates: start: 20160513
  7. PREDNISOLONE. [Suspect]
     Active Substance: PREDNISOLONE
     Indication: RHEUMATOID ARTHRITIS
     Dosage: 1 MG, QD
     Route: 048
     Dates: start: 20141001, end: 20160720
  8. METHOTREXATE. [Concomitant]
     Active Substance: METHOTREXATE
     Indication: RHEUMATOID ARTHRITIS
     Dosage: 16 MG, QWK
     Route: 048
     Dates: start: 20151208, end: 201607
  9. LULICON [Concomitant]
     Indication: TINEA PEDIS
     Dosage: PROPER QUANTITY, QD
     Route: 062
     Dates: start: 20160513
  10. ASPARA-CA [Suspect]
     Active Substance: CALCIUM ASPARTATE
     Indication: MINERAL SUPPLEMENTATION
  11. EDIROL [Concomitant]
     Active Substance: ELDECALCITOL
     Indication: VITAMIN SUPPLEMENTATION
     Dosage: 0.75 MUG, QD
     Route: 048
     Dates: start: 20151111
  12. FOLIAMIN [Concomitant]
     Active Substance: FOLIC ACID
     Indication: VITAMIN SUPPLEMENTATION
     Dosage: 10 MG, QWK
     Route: 048
     Dates: start: 20150219, end: 20160708

REACTIONS (1)
  - Ureterolithiasis [Recovered/Resolved]

NARRATIVE: CASE EVENT DATE: 20160619
